FAERS Safety Report 17303302 (Version 1)
Quarter: 2020Q1

REPORT INFORMATION
  Report Type: Spontaneous
  Country: US (occurrence: US)
  Receive Date: 20200122
  Receipt Date: 20200122
  Transmission Date: 20200409
  Serious: No
  Sender: FDA-Public Use
  Company Number: US-SA-2020SA017990

PATIENT
  Age: 33 Year
  Sex: Female

DRUGS (6)
  1. CLOCORTOLONE [Concomitant]
  2. FLUOCINOLONE ACETATE [Concomitant]
     Active Substance: FLUOCINOLONE ACETONIDE
  3. MUPIROCIN. [Concomitant]
     Active Substance: MUPIROCIN
  4. DUPIXENT [Suspect]
     Active Substance: DUPILUMAB
     Indication: DERMATITIS ATOPIC
     Dosage: 300 MG, QOW
     Route: 058
     Dates: start: 20191224
  5. EUCRISA [Concomitant]
     Active Substance: CRISABOROLE
  6. MONTELUKAST [Concomitant]
     Active Substance: MONTELUKAST SODIUM

REACTIONS (3)
  - Dermatitis atopic [Not Recovered/Not Resolved]
  - Alopecia [Not Recovered/Not Resolved]
  - Rash [Not Recovered/Not Resolved]

NARRATIVE: CASE EVENT DATE: 202001
